FAERS Safety Report 21592462 (Version 2)
Quarter: 2023Q1

REPORT INFORMATION
  Report Type: Spontaneous
  Country: None (occurrence: US)
  Receive Date: 20221114
  Receipt Date: 20230329
  Transmission Date: 20230418
  Serious: Yes (Other)
  Sender: FDA-Public Use
  Company Number: US-Imprimis NJOF, LLC-2134846

PATIENT
  Age: 82 Year
  Sex: Female

DRUGS (1)
  1. PREDNISOLONE ACETATE PF [Suspect]
     Active Substance: PREDNISOLONE ACETATE
     Route: 047

REACTIONS (1)
  - Dermatitis acneiform [Unknown]
